FAERS Safety Report 15658311 (Version 2)
Quarter: 2018Q4

REPORT INFORMATION
  Report Type: Spontaneous
  Country: RO (occurrence: RO)
  Receive Date: 20181126
  Receipt Date: 20181221
  Transmission Date: 20190205
  Serious: Yes (Death, Other)
  Sender: FDA-Public Use
  Company Number: RO-TAKEDA-2018TUS033849

PATIENT
  Age: 53 Year

DRUGS (1)
  1. ICLUSIG [Suspect]
     Active Substance: PONATINIB
     Indication: ACUTE LYMPHOCYTIC LEUKAEMIA
     Dosage: 45 MG, QD
     Route: 048
     Dates: start: 201708, end: 201810

REACTIONS (1)
  - Chronic myeloid leukaemia [Fatal]

NARRATIVE: CASE EVENT DATE: 20181120
